FAERS Safety Report 6545735-X (Version None)
Quarter: 2010Q1

REPORT INFORMATION
  Report Type: 
  Country: None (occurrence: None)
  Receive Date: 20100119
  Receipt Date: 20100104
  Transmission Date: 20100710
  Serious: Yes (Hospitalization)
  Sender: FDA-Public Use
  Company Number: 2009AC000413

PATIENT
  Age: 57 Year
  Sex: Female

DRUGS (28)
  1. DIGOXIN [Suspect]
     Dosage: 0.25 MG;QD;PO
     Route: 048
     Dates: start: 20060901
  2. NITROGLYCERIN [Concomitant]
  3. TENORMIN [Concomitant]
  4. PROVACHOL [Concomitant]
  5. LOVAZA [Concomitant]
  6. MAXZIDE [Concomitant]
  7. METHADONE [Concomitant]
  8. FIBER TREE TABS [Concomitant]
  9. IRON [Concomitant]
  10. AMBIEN [Concomitant]
  11. TRICOR [Concomitant]
  12. DARVOCET [Concomitant]
  13. PROZAC [Concomitant]
  14. CALCIUM [Concomitant]
  15. FLAXSEED OIL [Concomitant]
  16. PRILOSEC [Concomitant]
  17. IBUPROFEN [Concomitant]
  18. TENORMIN [Concomitant]
  19. NORVASC [Concomitant]
  20. ASPIRIN [Concomitant]
  21. CLARITIN [Concomitant]
  22. ATENOLOL [Concomitant]
  23. NEXIUM [Concomitant]
  24. VITAMIN [Concomitant]
  25. VITAMIN E [Concomitant]
  26. GLUCOSAMINE [Concomitant]
  27. ZESTRIL [Concomitant]
  28. PRAVACHOL [Concomitant]

REACTIONS (13)
  - BRADYCARDIA [None]
  - CHEST PAIN [None]
  - DYSLIPIDAEMIA [None]
  - ECONOMIC PROBLEM [None]
  - GASTROOESOPHAGEAL REFLUX DISEASE [None]
  - HYPERTENSION [None]
  - INJURY [None]
  - MYALGIA [None]
  - PRESYNCOPE [None]
  - SINUS BRADYCARDIA [None]
  - STRESS [None]
  - THROAT TIGHTNESS [None]
  - VENTRICULAR EXTRASYSTOLES [None]
